FAERS Safety Report 4828446-8 (Version None)
Quarter: 2005Q4

REPORT INFORMATION
  Report Type: 
  Country: None (occurrence: None)
  Receive Date: 20051110
  Receipt Date: 20051103
  Transmission Date: 20060501
  Serious: Yes (Life-Threatening, Hospitalization, Other)
  Sender: FDA-Public Use
  Company Number: 2004-02012

PATIENT
  Age: 63 Year
  Sex: Male

DRUGS (1)
  1. IMMUCYST                      (BCG - IT (CONNAUGHT)) [Suspect]
     Indication: BLADDER CANCER
     Dosage: I.VES., BLADDER
     Route: 043
     Dates: start: 20040428

REACTIONS (5)
  - BLADDER CATHETERISATION [None]
  - HAEMATURIA [None]
  - IATROGENIC INJURY [None]
  - PYREXIA [None]
  - SEPSIS [None]
